FAERS Safety Report 8494326-2 (Version None)
Quarter: 2012Q2

REPORT INFORMATION
  Report Type: 
  Country: None (occurrence: None)
  Receive Date: 20120629
  Receipt Date: 20120622
  Transmission Date: 20120825
  Serious: Yes (Congenital Anomaly, Other)
  Sender: FDA-Public Use
  Company Number: GER/GER/12/0024782

PATIENT
  Age: 0 Year
  Sex: Female
  Weight: 4.05 kg

DRUGS (3)
  1. SEROQUEL [Suspect]
     Indication: PRODUCT USED FOR UNKNOWN INDICATION
     Dosage: 200 MG, 1 D, TRANSPLACENTAL
     Route: 064
     Dates: start: 20100126, end: 20101029
  2. LITHIUM CARBONATE [Suspect]
     Indication: PRODUCT USED FOR UNKNOWN INDICATION
     Dosage: 900 MG, 1 D, TRANSPLACENTAL
     Route: 064
     Dates: start: 20100126, end: 20101029
  3. VENLAFAXINE HCL [Suspect]
     Indication: PRODUCT USED FOR UNKNOWN INDICATION
     Dosage: 150 MG, 1 D, TRANSPLACENTAL
     Route: 064
     Dates: start: 20100126, end: 20101029

REACTIONS (4)
  - MATERNAL DRUGS AFFECTING FOETUS [None]
  - NEONATAL RESPIRATORY FAILURE [None]
  - ATRIAL SEPTAL DEFECT [None]
  - AGITATION NEONATAL [None]
